FAERS Safety Report 4978297-9 (Version None)
Quarter: 2006Q2

REPORT INFORMATION
  Report Type: 
  Country: None (occurrence: None)
  Receive Date: 20060417
  Receipt Date: 20060404
  Transmission Date: 20061013
  Serious: Yes (Hospitalization)
  Sender: FDA-Public Use
  Company Number: 223185

PATIENT
  Age: 66 Year
  Sex: Female
  Weight: 59.4 kg

DRUGS (24)
  1. AVASTIN [Suspect]
     Indication: NON-SMALL CELL LUNG CANCER
     Dosage: 15MG/KG, INTRAVENOUS
     Route: 042
     Dates: start: 20060214, end: 20060307
  2. AVASTIN [Suspect]
  3. ALIMTA [Suspect]
     Indication: NON-SMALL CELL LUNG CANCER
     Dosage: 500 MG/M2, INTRAVENOUS
     Route: 042
     Dates: start: 20060214, end: 20060307
  4. ELOXATIN [Suspect]
     Indication: NON-SMALL CELL LUNG CANCER
     Dosage: 120 MG/M2, INTRAVENOUS
     Route: 042
     Dates: start: 20060214, end: 20060307
  5. ELOXATIN [Suspect]
  6. RABEPRAZOLE (RABEPRAZOLE) [Concomitant]
  7. ADVAIR DISKUS (FLUTICASONE PROPIONATE, SALMETEROL XINAFOATE) [Concomitant]
  8. AMITRIPTYLINE HCL [Concomitant]
  9. BUSPIRONE (BUSPIRONE HYDROCHLORIDE) [Concomitant]
  10. CALCIUM (CALCIUM NOS) [Concomitant]
  11. CENTRUM SILVER MULTIVITAMIN (MINERALS NOS, MULTIVITAMINS NOS) [Concomitant]
  12. DARVOCET-N 100 (ACETAMINOPHEN, PROPOXYPHENE NAPSYLATE) [Concomitant]
  13. ASPIRIN [Concomitant]
  14. ESTRACE [Concomitant]
  15. GARLIC TABLET (CARLIC) [Concomitant]
  16. CALCITONIN SALMON (SYNTHESIS) (SALCATONIN) [Concomitant]
  17. REGLAN [Concomitant]
  18. SPIRIVA [Concomitant]
  19. ASCORBIC ACID [Concomitant]
  20. XANAX [Concomitant]
  21. ZOCOR [Concomitant]
  22. CYANOCOBALAMIN [Concomitant]
  23. FOLIC ACID [Concomitant]
  24. NICOTROL (NOCOTINE) [Concomitant]

REACTIONS (6)
  - ALANINE AMINOTRANSFERASE INCREASED [None]
  - ASPARTATE AMINOTRANSFERASE INCREASED [None]
  - HAEMOGLOBIN DECREASED [None]
  - LIVER FUNCTION TEST ABNORMAL [None]
  - PNEUMONIA [None]
  - RHABDOMYOLYSIS [None]
